FAERS Safety Report 6894706-2 (Version None)
Quarter: 2010Q3

REPORT INFORMATION
  Report Type: 
  Country: None (occurrence: None)
  Receive Date: 20100727
  Receipt Date: 20100714
  Transmission Date: 20110219
  Serious: Yes (Hospitalization)
  Sender: FDA-Public Use
  Company Number: US-JNJFOC-20100702168

PATIENT
  Sex: Female
  Weight: 55.79 kg

DRUGS (8)
  1. STELARA [Suspect]
     Indication: PSORIASIS
     Route: 058
  2. ATENOLOL [Concomitant]
  3. VITAMIN TAB [Concomitant]
  4. FLAXSEED OIL [Concomitant]
  5. CALCIUM AND VITAMIN D [Concomitant]
  6. FOLIC ACID [Concomitant]
  7. METHOTREXATE [Concomitant]
  8. LEVOTHYROXINE SODIUM [Concomitant]

REACTIONS (9)
  - ATRIAL FIBRILLATION [None]
  - CYSTITIS [None]
  - DRUG INEFFECTIVE [None]
  - PHOTOPSIA [None]
  - PNEUMONIA [None]
  - THYROTOXIC CRISIS [None]
  - VIRAL INFECTION [None]
  - VISION BLURRED [None]
  - VITREOUS FLOATERS [None]
